FAERS Safety Report 5410269-2 (Version None)
Quarter: 2007Q3

REPORT INFORMATION
  Report Type: 
  Country: None (occurrence: None)
  Receive Date: 20070808
  Receipt Date: 20070725
  Transmission Date: 20080115
  Serious: Yes (Hospitalization)
  Sender: FDA-Public Use
  Company Number: 2007SI004988

PATIENT
  Age: 82 Year
  Sex: Male
  Weight: 72.5755 kg

DRUGS (1)
  1. LEVOTHYROXINE SODIUM [Suspect]
     Indication: THYROID DISORDER
     Dosage: 50 UG; DAILY; ORAL
     Route: 048
     Dates: start: 20060601, end: 20070408

REACTIONS (13)
  - ASTHENIA [None]
  - BALANCE DISORDER [None]
  - HEMIPARESIS [None]
  - HYPONATRAEMIA [None]
  - MYALGIA [None]
  - NEUROPATHY [None]
  - PAIN IN EXTREMITY [None]
  - SPINAL COLUMN STENOSIS [None]
  - TRANSIENT ISCHAEMIC ATTACK [None]
  - VIRAL INFECTION [None]
  - VIRAL MYOSITIS [None]
  - WALKING AID USER [None]
  - WEIGHT DECREASED [None]
